FAERS Safety Report 20048604 (Version 1)
Quarter: 2021Q4

REPORT INFORMATION
  Report Type: Spontaneous
  Country: CH (occurrence: CH)
  Receive Date: 20211109
  Receipt Date: 20211109
  Transmission Date: 20220304
  Serious: No
  Sender: FDA-Public Use
  Company Number: CH-PFIZER INC-202101218318

PATIENT
  Age: 49 Year
  Sex: Female

DRUGS (1)
  1. DEPO-PROVERA [Suspect]
     Active Substance: MEDROXYPROGESTERONE ACETATE
     Dosage: UNK, EVERY 3 MONTHS

REACTIONS (2)
  - Incorrect dose administered by device [Unknown]
  - Syringe issue [Unknown]

NARRATIVE: CASE EVENT DATE: 20210916
